FAERS Safety Report 18441611 (Version 1)
Quarter: 2020Q4

REPORT INFORMATION
  Report Type: Spontaneous
  Country: US (occurrence: US)
  Receive Date: 20201029
  Receipt Date: 20201029
  Transmission Date: 20210114
  Serious: No
  Sender: FDA-Public Use
  Company Number: US-PFIZER INC-2020411171

PATIENT
  Age: 96 Year
  Sex: Male

DRUGS (1)
  1. ZOLOFT [Suspect]
     Active Substance: SERTRALINE HYDROCHLORIDE
     Dosage: 2.5 ML

REACTIONS (3)
  - Product use issue [Unknown]
  - Off label use [Unknown]
  - Frustration tolerance decreased [Unknown]
